FAERS Safety Report 12550572 (Version 5)
Quarter: 2016Q4

REPORT INFORMATION
  Report Type: Report from Study
  Country: None (occurrence: BR)
  Receive Date: 20160712
  Receipt Date: 20161215
  Transmission Date: 20170207
  Serious: Yes (Other)
  Sender: FDA-Public Use
  Company Number: BR-ABBVIE-16K-020-1672266-00

PATIENT
  Age: 46 Year
  Sex: Female
  Weight: 75 kg

DRUGS (8)
  1. HUMIRA [Suspect]
     Active Substance: ADALIMUMAB
     Dosage: EVERY 20 OR 25 DAYS
     Route: 058
     Dates: start: 2016, end: 2016
  2. METHOTREXATE. [Concomitant]
     Active Substance: METHOTREXATE
     Indication: PSORIASIS
     Route: 048
     Dates: start: 2010
  3. OMEGA 3 [Concomitant]
     Active Substance: OMEGA-3 FATTY ACIDS
     Indication: INFLAMMATION
     Route: 048
  4. HUMIRA [Suspect]
     Active Substance: ADALIMUMAB
     Indication: PSORIASIS
     Dosage: LOADING DOSE
     Route: 058
     Dates: start: 20160405, end: 20160405
  5. HUMIRA [Suspect]
     Active Substance: ADALIMUMAB
     Dosage: LOADING DOSE
     Route: 058
     Dates: start: 2016, end: 2016
  6. HUMIRA [Suspect]
     Active Substance: ADALIMUMAB
     Route: 058
     Dates: start: 2016
  7. HUMIRA [Suspect]
     Active Substance: ADALIMUMAB
     Route: 058
     Dates: start: 2016, end: 20160619
  8. LEVEL [Concomitant]
     Indication: CONTRACEPTION
     Route: 048
     Dates: start: 2000

REACTIONS (26)
  - Injection site induration [Not Recovered/Not Resolved]
  - Injection site erythema [Recovering/Resolving]
  - Pruritus [Not Recovered/Not Resolved]
  - Seroma [Recovering/Resolving]
  - Nodule [Not Recovered/Not Resolved]
  - Pain in extremity [Unknown]
  - Injection site warmth [Recovered/Resolved]
  - Injection site haematoma [Recovering/Resolving]
  - Thrombophlebitis [Not Recovered/Not Resolved]
  - Injection site warmth [Not Recovered/Not Resolved]
  - Arthralgia [Not Recovered/Not Resolved]
  - Injection site pain [Recovered/Resolved]
  - Lymphadenopathy [Recovered/Resolved]
  - Weight increased [Not Recovered/Not Resolved]
  - Injection site swelling [Recovering/Resolving]
  - Injection site dryness [Recovering/Resolving]
  - Thyroid disorder [Not Recovered/Not Resolved]
  - Injection site erythema [Not Recovered/Not Resolved]
  - Injection site discomfort [Recovering/Resolving]
  - Injection site discolouration [Recovering/Resolving]
  - Injection site hypersensitivity [Recovering/Resolving]
  - Malaise [Not Recovered/Not Resolved]
  - Arthralgia [Not Recovered/Not Resolved]
  - Injection site mass [Not Recovered/Not Resolved]
  - Limb mass [Not Recovered/Not Resolved]
  - Ultrasound Doppler abnormal [Unknown]

NARRATIVE: CASE EVENT DATE: 2016
